FAERS Safety Report 4286990-9 (Version None)
Quarter: 2004Q1

REPORT INFORMATION
  Report Type: 
  Country: None (occurrence: None)
  Receive Date: 20040204
  Receipt Date: 20040126
  Transmission Date: 20041129
  Serious: Yes (Death, Life-Threatening, Hospitalization, Congenital Anomaly, Other)
  Sender: FDA-Public Use
  Company Number: 2003-10-2406

PATIENT
  Age: 1 Day

DRUGS (2)
  1. REBETOL [Suspect]
     Indication: HEPATITIS C
     Dosage: ORAL
     Route: 048
     Dates: end: 20000501
  2. INTERFERON ALFA-2B [Suspect]
     Dates: end: 20000501

REACTIONS (8)
  - BONE NEOPLASM [None]
  - CAESAREAN SECTION [None]
  - FOETAL DISORDER [None]
  - IATROGENIC INJURY [None]
  - POLYHYDRAMNIOS [None]
  - PREGNANCY [None]
  - PREMATURE BABY [None]
  - TRANSMISSION OF DRUG VIA SEMEN [None]
